FAERS Safety Report 16267829 (Version 2)
Quarter: 2019Q2

REPORT INFORMATION
  Report Type: Spontaneous
  Country: US (occurrence: US)
  Receive Date: 20190503
  Receipt Date: 20190513
  Transmission Date: 20190711
  Serious: Yes (Hospitalization, Other)
  Sender: FDA-Public Use
  Company Number: US-JNJFOC-20190440329

PATIENT
  Age: 16 Year
  Sex: Female

DRUGS (1)
  1. PARACETAMOL [Suspect]
     Active Substance: ACETAMINOPHEN
     Indication: SUICIDE ATTEMPT
     Dosage: 60 DOSAGE FORM ONCE
     Route: 048

REACTIONS (6)
  - Intentional overdose [Unknown]
  - Mental status changes [Unknown]
  - Hepatotoxicity [Unknown]
  - Chest discomfort [Unknown]
  - Lethargy [Unknown]
  - Headache [Unknown]
